FAERS Safety Report 5624407-X (Version None)
Quarter: 2008Q1

REPORT INFORMATION
  Report Type: 
  Country: None (occurrence: None)
  Receive Date: 20080206
  Receipt Date: 20080206
  Transmission Date: 20080703
  Serious: Yes (Hospitalization)
  Sender: FDA-Public Use
  Company Number: None

PATIENT
  Sex: Male
  Weight: 20.4 kg

DRUGS (1)
  1. CEFDINIR [Suspect]
     Indication: CHRONIC SINUSITIS
     Dosage: PO
     Route: 048

REACTIONS (20)
  - ARTHRALGIA [None]
  - ERYTHEMA [None]
  - ERYTHEMA ANNULARE [None]
  - EYE SWELLING [None]
  - HYPOKINESIA [None]
  - JOINT RANGE OF MOTION DECREASED [None]
  - JOINT SWELLING [None]
  - MOVEMENT DISORDER [None]
  - OEDEMA [None]
  - OEDEMA PERIPHERAL [None]
  - PAIN [None]
  - PAIN IN EXTREMITY [None]
  - PERIORBITAL OEDEMA [None]
  - PRURITUS GENERALISED [None]
  - RASH [None]
  - SINUSITIS [None]
  - SKIN PLAQUE [None]
  - SWELLING FACE [None]
  - TENDERNESS [None]
  - URTICARIA [None]
